FAERS Safety Report 14597638 (Version 1)
Quarter: 2018Q1

REPORT INFORMATION
  Report Type: Spontaneous
  Country: US (occurrence: US)
  Receive Date: 20180305
  Receipt Date: 20180305
  Transmission Date: 20180509
  Serious: No
  Sender: FDA-Public Use
  Company Number: PHEH2018US008388

PATIENT
  Sex: Female
  Weight: 108.8 kg

DRUGS (3)
  1. ZOFRAN [Suspect]
     Active Substance: ONDANSETRON HYDROCHLORIDE
     Indication: NAUSEA
     Route: 065
  2. TIKOSYN [Suspect]
     Active Substance: DOFETILIDE
     Indication: ATRIAL FIBRILLATION
     Dosage: 125 MG, BID
     Route: 048
     Dates: start: 201008
  3. TIKOSYN [Suspect]
     Active Substance: DOFETILIDE
     Dosage: 250 MG, BID
     Route: 048
     Dates: start: 201008

REACTIONS (1)
  - Contraindicated product administered [Unknown]
